FAERS Safety Report 6665327-1 (Version None)
Quarter: 2010Q1

REPORT INFORMATION
  Report Type: 
  Country: None (occurrence: None)
  Receive Date: 20100331
  Receipt Date: 20100324
  Transmission Date: 20100710
  Serious: Yes (Other)
  Sender: FDA-Public Use
  Company Number: RB-05621-2010

PATIENT
  Age: 75 Year
  Sex: Male

DRUGS (3)
  1. MUCINEX [Suspect]
     Indication: SINUS CONGESTION
     Dosage: 600 MG 1X/24 HOURS TOOK ONE TABLET EVERY 24 HOURS, TWICE IN TOTAL ORAL
     Route: 048
     Dates: start: 20100301
  2. MUCINEX [Suspect]
     Indication: SINUS CONGESTION
     Dosage: 1200 MG 1X/24 HOURS TAKING 1 TABLET EVERY 24 HOURS FOR 3-4 DAYS ORAL
     Route: 048
     Dates: start: 20100301
  3. MUCINEX [Suspect]
     Indication: SINUS CONGESTION
     Dosage: ORAL
     Route: 048
     Dates: start: 20100301

REACTIONS (1)
  - BLOOD PRESSURE INCREASED [None]
